FAERS Safety Report 6847284-8 (Version None)
Quarter: 2010Q3

REPORT INFORMATION
  Report Type: 
  Country: None (occurrence: None)
  Receive Date: 20100716
  Receipt Date: 20100707
  Transmission Date: 20110219
  Serious: Yes (Hospitalization)
  Sender: FDA-Public Use
  Company Number: US-JNJFOC-20100703314

PATIENT
  Age: 3 Year
  Sex: Female
  Weight: 11.79 kg

DRUGS (4)
  1. CHILDREN'S TYLENOL SUSPENSION [Suspect]
     Indication: PYREXIA
  2. CHILDREN'S TYLENOL SUSPENSION [Suspect]
     Indication: EAR INFECTION
  3. CHILDREN'S MOTRIN [Suspect]
     Indication: EAR INFECTION
  4. CHILDREN'S MOTRIN [Suspect]
     Indication: PYREXIA

REACTIONS (2)
  - ADVERSE EVENT [None]
  - PRODUCT QUALITY ISSUE [None]
